FAERS Safety Report 5512431-7 (Version None)
Quarter: 2007Q4

REPORT INFORMATION
  Report Type: 
  Country: None (occurrence: None)
  Receive Date: 20071112
  Receipt Date: 20061103
  Transmission Date: 20080405
  Serious: No
  Sender: FDA-Public Use
  Company Number: A0626442A

PATIENT
  Age: 64 Year
  Sex: Female
  Weight: 79.5 kg

DRUGS (4)
  1. AVANDAMET [Suspect]
     Route: 048
     Dates: start: 20060910
  2. GLIPIZIDE [Concomitant]
  3. GLUCOPHAGE [Concomitant]
     Dates: end: 20060910
  4. BYETTA [Concomitant]
     Dosage: 10MCG TWICE PER DAY
     Route: 058
     Dates: start: 20060301

REACTIONS (1)
  - BLOOD GLUCOSE INCREASED [None]
